FAERS Safety Report 18673512 (Version 1)
Quarter: 2020Q4

REPORT INFORMATION
  Report Type: Spontaneous
  Country: US (occurrence: US)
  Receive Date: 20201228
  Receipt Date: 20201228
  Transmission Date: 20210114
  Serious: No
  Sender: FDA-Public Use
  Company Number: US-PFIZER INC-2019283394

PATIENT
  Age: 89 Year
  Sex: Female

DRUGS (7)
  1. LYRICA [Suspect]
     Active Substance: PREGABALIN
     Indication: PAIN
     Dosage: 50 MG, 4X/DAY (2 ORAL 4 TIMES A DAY)
     Route: 048
  2. LYRICA [Suspect]
     Active Substance: PREGABALIN
     Dosage: 100 MG, 4X/DAY
     Route: 048
  3. LYRICA [Suspect]
     Active Substance: PREGABALIN
     Dosage: 25 MG, 4X/DAY
     Route: 048
  4. LYRICA [Suspect]
     Active Substance: PREGABALIN
     Dosage: 100 MG, 4X/DAY
     Route: 048
  5. LYRICA [Suspect]
     Active Substance: PREGABALIN
     Dosage: 200 MG, 4X/DAY [LYRICA 100 MG; SIG: 2 CAP PO QID (FOUR TIMES A DAY)]
     Route: 048
  6. LYRICA [Suspect]
     Active Substance: PREGABALIN
     Dosage: 200 MG, 1X/DAY, (8 PILLS A DAY FOR THE 25 MG)
  7. LYRICA [Suspect]
     Active Substance: PREGABALIN
     Dosage: 175 MG, 1X/DAY, (25 MG , 7 A DAY)

REACTIONS (3)
  - Overdose [Unknown]
  - Intentional product use issue [Unknown]
  - Somnolence [Unknown]
